FAERS Safety Report 18642675 (Version 1)
Quarter: 2020Q4

REPORT INFORMATION
  Report Type: Spontaneous
  Country: US (occurrence: US)
  Receive Date: 20201218
  Receipt Date: 20201218
  Transmission Date: 20210114
  Serious: Yes (Hospitalization)
  Sender: FDA-Public Use
  Company Number: None

PATIENT
  Sex: Male

DRUGS (1)
  1. SIROLIMUS 1MG GREENSTONE [Suspect]
     Active Substance: SIROLIMUS
     Indication: RENAL TRANSPLANT
     Dosage: OTHER FREQUENCY:EVERY MORNING;?
     Route: 048
     Dates: start: 20201020

REACTIONS (3)
  - COVID-19 [None]
  - Vomiting [None]
  - Cerebral disorder [None]
